FAERS Safety Report 7387365-6 (Version None)
Quarter: 2011Q1

REPORT INFORMATION
  Report Type: 
  Country: None (occurrence: None)
  Receive Date: 20110331
  Receipt Date: 20110316
  Transmission Date: 20110831
  Serious: Yes (Other)
  Sender: FDA-Public Use
  Company Number: PHHO2011DE04863

PATIENT
  Sex: Female
  Weight: 84 kg

DRUGS (1)
  1. GLEEVEC [Suspect]
     Indication: CHRONIC MYELOID LEUKAEMIA
     Dosage: 800 MG, QD
     Route: 048
     Dates: start: 20110218, end: 20110314

REACTIONS (2)
  - GRANULOCYTE COUNT DECREASED [None]
  - NEUTROPHIL COUNT DECREASED [None]
